FAERS Safety Report 7083130-8 (Version None)
Quarter: 2010Q4

REPORT INFORMATION
  Report Type: 
  Country: None (occurrence: None)
  Receive Date: 20101027
  Receipt Date: 20101021
  Transmission Date: 20110411
  Serious: Yes (Hospitalization)
  Sender: FDA-Public Use
  Company Number: 2010S1000884

PATIENT
  Age: 60 Year
  Sex: Female

DRUGS (2)
  1. LIVALO [Suspect]
     Indication: HYPERCHOLESTEROLAEMIA
     Dosage: 1 MG; QOD; PO, 1 MG; QOD; PO
     Route: 048
     Dates: start: 20100203, end: 20100529
  2. LIVALO [Suspect]
     Indication: HYPERCHOLESTEROLAEMIA
     Dosage: 1 MG; QOD; PO, 1 MG; QOD; PO
     Route: 048
     Dates: start: 20100915

REACTIONS (5)
  - CEREBRAL INFARCTION [None]
  - DIZZINESS [None]
  - DYSARTHRIA [None]
  - GUILLAIN-BARRE SYNDROME [None]
  - NASOPHARYNGITIS [None]
